FAERS Safety Report 7692408-6 (Version None)
Quarter: 2011Q3

REPORT INFORMATION
  Report Type: 
  Country: None (occurrence: None)
  Receive Date: 20110818
  Receipt Date: 20110803
  Transmission Date: 20111222
  Serious: Yes (Hospitalization)
  Sender: FDA-Public Use
  Company Number: GB-BAYER-2011-058106

PATIENT
  Age: 31 Year
  Sex: Male
  Weight: 89.6 kg

DRUGS (8)
  1. ACETYLSALICYLIC ACID SRT [Suspect]
     Dosage: UNK
     Dates: start: 20110325, end: 20110325
  2. ACETAMINOPHEN [Suspect]
     Dosage: UNK
     Dates: start: 20110325, end: 20110325
  3. DIAZEPAM [Concomitant]
     Indication: ANXIETY
     Dosage: DAILY DOSE 15 MG
     Route: 048
  4. BENZODIAZEPINE [Suspect]
     Dosage: UNK
     Dates: start: 20110325, end: 20110325
  5. CLOZAPINE [Suspect]
     Dosage: UNK
     Dates: start: 20031118, end: 20110325
  6. CLOZAPINE [Suspect]
     Indication: SCHIZOPHRENIA
     Dosage: 750 MG, UNK
     Route: 048
     Dates: start: 20110406
  7. SALICYLATES [Suspect]
     Dosage: UNK
     Dates: start: 20110325, end: 20110325
  8. TEMAZEPAM [Suspect]
     Dosage: UNK
     Dates: start: 20110325, end: 20110325

REACTIONS (3)
  - MENTAL DISORDER [None]
  - ALANINE AMINOTRANSFERASE INCREASED [None]
  - LIVER FUNCTION TEST ABNORMAL [None]
